FAERS Safety Report 15955353 (Version 2)
Quarter: 2019Q1

REPORT INFORMATION
  Report Type: Report from Study
  Country: DE (occurrence: DE)
  Receive Date: 20190213
  Receipt Date: 20190220
  Transmission Date: 20190417
  Serious: Yes (Hospitalization, Other)
  Sender: FDA-Public Use
  Company Number: DE-ACCORD-106280

PATIENT
  Age: 52 Year
  Sex: Female
  Weight: 134 kg

DRUGS (12)
  1. PERTUZUMAB. [Suspect]
     Active Substance: PERTUZUMAB
     Indication: BREAST CANCER
     Dosage: DATE OF MOST RECENT DOSE: 09-NOV-2016
     Route: 042
     Dates: start: 20160916, end: 20161109
  2. HALOPERIDOL. [Concomitant]
     Active Substance: HALOPERIDOL
     Route: 048
     Dates: start: 20170615
  3. PACLITAXEL/PACLITAXEL LIPOSOME [Suspect]
     Active Substance: PACLITAXEL
     Indication: PRODUCT USED FOR UNKNOWN INDICATION
     Dosage: DAILY DOSE: 150 MG MILLGRAM(S) EVERY 3 WEEKS
     Route: 042
     Dates: start: 20160924
  4. SYMBICORT [Concomitant]
     Active Substance: BUDESONIDE\FORMOTEROL FUMARATE DIHYDRATE
     Indication: METASTASES TO PLEURA
     Dosage: DOSE: 2
     Route: 055
     Dates: start: 201606
  5. SPIRIVA RESPIMAT [Concomitant]
     Active Substance: TIOTROPIUM BROMIDE
     Route: 048
  6. SPIRIVA RESPIMAT [Concomitant]
     Active Substance: TIOTROPIUM BROMIDE
     Indication: METASTASES TO PLEURA
     Route: 055
     Dates: start: 20160815
  7. SALBUTAMOL [Concomitant]
     Active Substance: ALBUTEROL
     Indication: ASTHMA
     Dosage: DOSE: 1
     Route: 055
  8. DEXAMETHASONE. [Concomitant]
     Active Substance: DEXAMETHASONE
     Indication: PROPHYLAXIS
     Dosage: ALSO RECEIVED 12 MG FROM 15-JUN-2017
     Route: 048
     Dates: start: 20170922
  9. DOCETAXEL. [Suspect]
     Active Substance: DOCETAXEL
     Indication: BREAST CANCER
     Dosage: DATE OF MOST RECENT DOSE: 20-OCT-2016 AND 18-MAY-2017
     Route: 042
     Dates: start: 20160924, end: 20170615
  10. FUROSEMIDE. [Concomitant]
     Active Substance: FUROSEMIDE
     Dosage: DAILY DOSE: 40 MG MILLGRAM(S) EVERY DAYS
     Route: 048
     Dates: start: 20160920
  11. HERCEPTIN [Suspect]
     Active Substance: TRASTUZUMAB
     Indication: BREAST CANCER
     Dosage: ALSO RECEIVED FROM 24-SEP-2016 TO 15-JUN-2017
     Route: 042
     Dates: start: 20160922
  12. PANTOPRAZOLE [Concomitant]
     Active Substance: PANTOPRAZOLE
     Route: 048
     Dates: start: 20170615

REACTIONS (13)
  - Constipation [Recovered/Resolved]
  - Chills [Recovered/Resolved]
  - Gastritis [Not Recovered/Not Resolved]
  - Oesophageal candidiasis [Not Recovered/Not Resolved]
  - Stomatitis [Recovered/Resolved]
  - Anaphylactic reaction [Recovered/Resolved]
  - Lethargy [Not Recovered/Not Resolved]
  - Painful respiration [Recovered/Resolved]
  - Pulmonary function test decreased [Recovered/Resolved]
  - Productive cough [Recovered/Resolved]
  - Arthralgia [Recovered/Resolved]
  - Dysgeusia [Recovered/Resolved]
  - Breast cancer [Recovered/Resolved]

NARRATIVE: CASE EVENT DATE: 20160924
